FAERS Safety Report 7674197-4 (Version None)
Quarter: 2011Q3

REPORT INFORMATION
  Report Type: 
  Country: None (occurrence: None)
  Receive Date: 20110711
  Receipt Date: 20110411
  Transmission Date: 20111222
  Serious: Yes (Other)
  Sender: FDA-Public Use
  Company Number: IPC201104-000634

PATIENT
  Sex: 0

DRUGS (6)
  1. METOCLOPRAMIDE HYDROCHLORIDE [Suspect]
     Indication: ABDOMINAL DISTENSION
     Dosage: SYRUP, ORAL
     Route: 048
     Dates: start: 20081101, end: 20090326
  2. METOCLOPRAMIDE HYDROCHLORIDE [Suspect]
     Indication: DYSPEPSIA
     Dosage: SYRUP, ORAL
     Route: 048
     Dates: start: 20081101, end: 20090326
  3. METOCLOPRAMIDE HYDROCHLORIDE [Suspect]
     Indication: ABDOMINAL DISTENSION
     Dosage: SYRUP, ORAL
     Route: 048
     Dates: start: 20080201, end: 20100901
  4. METOCLOPRAMIDE HYDROCHLORIDE [Suspect]
     Indication: DYSPEPSIA
     Dosage: SYRUP, ORAL
     Route: 048
     Dates: start: 20080201, end: 20100901
  5. REGLAN [Suspect]
     Indication: DYSPEPSIA
     Dates: start: 20080201, end: 20100901
  6. REGLAN [Suspect]
     Indication: ABDOMINAL DISTENSION
     Dates: start: 20080201, end: 20100901

REACTIONS (6)
  - AKATHISIA [None]
  - TREMOR [None]
  - TARDIVE DYSKINESIA [None]
  - EXTRAPYRAMIDAL DISORDER [None]
  - DYSTONIA [None]
  - DYSKINESIA [None]
